FAERS Safety Report 10598000 (Version 2)
Quarter: 2014Q4

REPORT INFORMATION
  Report Type: Spontaneous
  Country: CA (occurrence: CA)
  Receive Date: 20141121
  Receipt Date: 20141125
  Transmission Date: 20150529
  Serious: Yes (Death, Hospitalization, Other)
  Sender: FDA-Public Use
  Company Number: CA-JNJFOC-20141108874

PATIENT
  Age: 58 Year
  Sex: Male

DRUGS (2)
  1. GALEXOS [Suspect]
     Active Substance: SIMEPREVIR
     Indication: HEPATITIS C
     Dates: start: 20140725, end: 20141014
  2. SOVALDI [Suspect]
     Active Substance: SOFOSBUVIR
     Indication: HEPATITIS C
     Route: 065
     Dates: start: 20140725, end: 20141014

REACTIONS (5)
  - General physical health deterioration [Fatal]
  - Off label use [Recovered/Resolved]
  - Asthenia [Fatal]
  - Liver disorder [Fatal]
  - Blood bilirubin increased [Unknown]

NARRATIVE: CASE EVENT DATE: 20140725
